FAERS Safety Report 9351068 (Version 1)
Quarter: 2013Q2

REPORT INFORMATION
  Report Type: Report from Study
  Country: US (occurrence: US)
  Receive Date: 20130617
  Receipt Date: 20130617
  Transmission Date: 20140414
  Serious: Yes (Other)
  Sender: FDA-Public Use
  Company Number: PHHO2013US007945

PATIENT
  Age: 43 Year
  Sex: Female
  Weight: 83.5 kg

DRUGS (4)
  1. SOM230 [Suspect]
     Indication: INTRADUCTAL PROLIFERATIVE BREAST LESION
     Dosage: 600 UG, BID
     Route: 058
     Dates: start: 20130605, end: 20130606
  2. SOM230 [Suspect]
     Dosage: 600 UG, BID
     Route: 058
     Dates: start: 20130607, end: 20130607
  3. SOM230 [Suspect]
     Dosage: 300 UG, BID
     Route: 058
     Dates: start: 20130608, end: 20130608
  4. SOM230 [Suspect]
     Dosage: 0.8 ML, BID
     Route: 058
     Dates: start: 20130610

REACTIONS (1)
  - Injection site reaction [Unknown]
